FAERS Safety Report 15969011 (Version 1)
Quarter: 2019Q1

REPORT INFORMATION
  Report Type: Spontaneous
  Country: US (occurrence: US)
  Receive Date: 20190215
  Receipt Date: 20190215
  Transmission Date: 20190418
  Serious: Yes (Other)
  Sender: FDA-Public Use
  Company Number: US-BAUSCH-SYM-2013-01720

PATIENT
  Sex: Female

DRUGS (8)
  1. ONFI [Concomitant]
     Active Substance: CLOBAZAM
     Indication: PRODUCT USED FOR UNKNOWN INDICATION
  2. DIASTAT [Suspect]
     Active Substance: DIAZEPAM
     Indication: GENERALISED TONIC-CLONIC SEIZURE
     Dosage: AS NEEDED, ACUDIAL 20 MG DELIVERY SYSTEM TWIN PACK
     Route: 054
     Dates: start: 201302
  3. LORAZEPAM. [Concomitant]
     Active Substance: LORAZEPAM
     Indication: PRODUCT USED FOR UNKNOWN INDICATION
     Dosage: 1-2 MG
  4. FENTANYL. [Concomitant]
     Active Substance: FENTANYL
     Indication: PRODUCT USED FOR UNKNOWN INDICATION
     Dosage: PATCH
  5. POTIGA [Concomitant]
     Active Substance: EZOGABINE
     Indication: PRODUCT USED FOR UNKNOWN INDICATION
  6. MAXALT [Concomitant]
     Active Substance: RIZATRIPTAN BENZOATE
     Indication: PRODUCT USED FOR UNKNOWN INDICATION
  7. DIASTAT [Suspect]
     Active Substance: DIAZEPAM
     Dosage: AS NEEDED, ACUDIAL 20 MG DELIVERY SYSTEM TWIN PACK
     Route: 054
     Dates: end: 201901
  8. DIASTAT [Suspect]
     Active Substance: DIAZEPAM
     Dosage: APPROXIMATELY 12 SYRINGES
     Route: 054

REACTIONS (8)
  - Insurance issue [Not Recovered/Not Resolved]
  - Joint dislocation [Unknown]
  - Aura [Not Recovered/Not Resolved]
  - Blood pressure increased [Not Recovered/Not Resolved]
  - Drug ineffective [Not Recovered/Not Resolved]
  - Therapy cessation [Not Recovered/Not Resolved]
  - Heart rate increased [Not Recovered/Not Resolved]
  - Rib fracture [Unknown]

NARRATIVE: CASE EVENT DATE: 2018
